FAERS Safety Report 6578727-5 (Version None)
Quarter: 2010Q1

REPORT INFORMATION
  Report Type: 
  Country: None (occurrence: None)
  Receive Date: 20100211
  Receipt Date: 20100201
  Transmission Date: 20100710
  Serious: Yes (Hospitalization)
  Sender: FDA-Public Use
  Company Number: LB-JNJFOC-20100200899

PATIENT
  Age: 37 Year
  Sex: Male

DRUGS (3)
  1. REMICADE [Suspect]
     Indication: COLITIS ULCERATIVE
     Dosage: HAD 1 DOSE
     Route: 042
  2. AZATHIOPRINE [Concomitant]
     Indication: COLITIS ULCERATIVE
  3. CORTICOSTEROIDS [Concomitant]
     Indication: COLITIS ULCERATIVE

REACTIONS (1)
  - MENINGITIS LISTERIA [None]
